FAERS Safety Report 25734513 (Version 1)
Quarter: 2025Q3

REPORT INFORMATION
  Report Type: Spontaneous
  Country: JP (occurrence: JP)
  Receive Date: 20250828
  Receipt Date: 20250828
  Transmission Date: 20251021
  Serious: Yes (Other)
  Sender: RANBAXY
  Company Number: JP-SUN PHARMACEUTICAL INDUSTRIES LTD-2025RR-524302

PATIENT
  Age: 75 Year
  Sex: Male

DRUGS (3)
  1. WARFARIN [Suspect]
     Active Substance: WARFARIN
     Indication: Product used for unknown indication
     Route: 065
  2. DABIGATRAN [Suspect]
     Active Substance: DABIGATRAN
     Indication: Product used for unknown indication
     Route: 065
  3. EDOXABAN [Suspect]
     Active Substance: EDOXABAN
     Indication: Product used for unknown indication
     Route: 065

REACTIONS (9)
  - Anticoagulant-related nephropathy [Recovering/Resolving]
  - Abdominal pain [Unknown]
  - Haematochezia [Unknown]
  - Haematuria [Unknown]
  - Arteriosclerosis [Unknown]
  - Drug eruption [Unknown]
  - Overdose [Unknown]
  - IgA nephropathy [Unknown]
  - Acute kidney injury [Unknown]
